FAERS Safety Report 9422615 (Version 1)
Quarter: 2013Q3

REPORT INFORMATION
  Report Type: Spontaneous
  Country: US (occurrence: US)
  Receive Date: 20130726
  Receipt Date: 20130726
  Transmission Date: 20140515
  Serious: No
  Sender: FDA-Public Use
  Company Number: US-MYLANLABS-2013S1012067

PATIENT
  Age: 34 Year
  Sex: Male

DRUGS (5)
  1. BUSPIRONE HYDROCHLORIDE [Suspect]
     Indication: ANXIETY
     Dates: start: 20130523, end: 20130530
  2. ATIVAN [Concomitant]
     Indication: ANXIETY
  3. ATENOLOL [Concomitant]
  4. SIMVASTATIN [Concomitant]
  5. DEPAKOTE [Concomitant]

REACTIONS (2)
  - Rash [Recovered/Resolved]
  - Pruritus [Not Recovered/Not Resolved]
